FAERS Safety Report 16790078 (Version 1)
Quarter: 2019Q3

REPORT INFORMATION
  Report Type: Spontaneous
  Country: AU (occurrence: AU)
  Receive Date: 20190910
  Receipt Date: 20190910
  Transmission Date: 20191005
  Serious: Yes (Other)
  Sender: FDA-Public Use
  Company Number: AU-MYLANLABS-2019M1084048

PATIENT
  Age: 44 Year
  Sex: Male

DRUGS (5)
  1. ATENOLOL. [Concomitant]
     Active Substance: ATENOLOL
  2. ARIPIPRAZOLE. [Interacting]
     Active Substance: ARIPIPRAZOLE
     Indication: PRODUCT USED FOR UNKNOWN INDICATION
     Dosage: UNK
  3. COLOXYL WITH SENNA [Concomitant]
     Active Substance: DOCUSATE\SENNOSIDES
  4. FLUOXETINE [Suspect]
     Active Substance: FLUOXETINE HYDROCHLORIDE
     Indication: PRODUCT USED FOR UNKNOWN INDICATION
     Dosage: UNK
  5. CLOPINE [Interacting]
     Active Substance: CLOZAPINE
     Indication: PRODUCT USED FOR UNKNOWN INDICATION
     Dosage: UNK

REACTIONS (15)
  - Blood creatine phosphokinase increased [Unknown]
  - Posture abnormal [Unknown]
  - Psychotic disorder [Unknown]
  - Hyperhidrosis [Unknown]
  - Hallucination, auditory [Unknown]
  - Mitral valve prolapse [Unknown]
  - Neuroleptic malignant syndrome [Unknown]
  - Flushing [Unknown]
  - Liver function test abnormal [Unknown]
  - Drug interaction [Unknown]
  - Tachycardia [Unknown]
  - Anxiety [Unknown]
  - Parkinsonism [Unknown]
  - Urinary retention [Unknown]
  - Tremor [Unknown]
